FAERS Safety Report 9129348 (Version 1)
Quarter: 2013Q1

REPORT INFORMATION
  Report Type: Spontaneous
  Country: US (occurrence: US)
  Receive Date: 20130228
  Receipt Date: 20130228
  Transmission Date: 20140127
  Serious: No
  Sender: FDA-Public Use
  Company Number: US-ABBOTT-13P-163-1034169-00

PATIENT
  Sex: Female
  Weight: 60.38 kg

DRUGS (5)
  1. ANDROGEL [Suspect]
     Indication: PRODUCT USED FOR UNKNOWN INDICATION
  2. TOPROL [Concomitant]
     Indication: ARRHYTHMIA
  3. PROMETRIUM [Concomitant]
     Indication: HOT FLUSH
  4. ENJUVIA [Concomitant]
     Indication: HOT FLUSH
  5. ULTRAM [Concomitant]
     Indication: BACK PAIN

REACTIONS (2)
  - Alopecia [Not Recovered/Not Resolved]
  - Accidental exposure to product [Not Recovered/Not Resolved]
